FAERS Safety Report 10596581 (Version 9)
Quarter: 2016Q1

REPORT INFORMATION
  Report Type: Report from Study
  Country: CA (occurrence: CA)
  Receive Date: 20141120
  Receipt Date: 20160317
  Transmission Date: 20160525
  Serious: Yes (Hospitalization, Other)
  Sender: FDA-Public Use
  Company Number: CA-INCYTE CORPORATION-2013IN002571

PATIENT
  Age: 76 Year
  Sex: Female

DRUGS (6)
  1. VITAMIN A + D [Concomitant]
     Indication: PRODUCT USED FOR UNKNOWN INDICATION
     Dosage: UNK
     Route: 065
  2. VITAMIIN C [Concomitant]
     Active Substance: ASCORBIC ACID
     Indication: PRODUCT USED FOR UNKNOWN INDICATION
     Dosage: UNK
     Route: 065
  3. JAKAFI [Suspect]
     Active Substance: RUXOLITINIB
     Indication: MYELOFIBROSIS
     Dosage: 15 MG, BID
     Route: 048
     Dates: start: 20130919
  4. QUININE [Concomitant]
     Active Substance: QUININE
     Dosage: UNK
     Route: 065
  5. JAKAFI [Suspect]
     Active Substance: RUXOLITINIB
     Dosage: 20 MG, BID
     Route: 048
     Dates: start: 20140517, end: 201601
  6. QUININE [Concomitant]
     Active Substance: QUININE
     Indication: PRODUCT USED FOR UNKNOWN INDICATION
     Dosage: UNK
     Route: 065

REACTIONS (30)
  - Malaise [Unknown]
  - Liver disorder [Unknown]
  - Hepatomegaly [Unknown]
  - Flatulence [Unknown]
  - Varices oesophageal [Unknown]
  - Migraine [Unknown]
  - Abasia [Unknown]
  - Oesophageal haemorrhage [Unknown]
  - Dehydration [Unknown]
  - Hernia [Unknown]
  - Diarrhoea [Unknown]
  - Night sweats [Recovering/Resolving]
  - Lung infection [Unknown]
  - Renal disorder [Unknown]
  - Ascites [Unknown]
  - Cough [Unknown]
  - Dyspnoea [Unknown]
  - Abdominal discomfort [Unknown]
  - Hepatitis C [Unknown]
  - Nausea [Unknown]
  - Arthralgia [Unknown]
  - Abdominal distension [Unknown]
  - Anaemia [Unknown]
  - Splenomegaly [Unknown]
  - Haemoglobin decreased [Unknown]
  - Headache [Recovering/Resolving]
  - Discomfort [Unknown]
  - Pain [Unknown]
  - Muscle spasms [Unknown]
  - Peripheral swelling [Unknown]

NARRATIVE: CASE EVENT DATE: 20140517
